FAERS Safety Report 10701728 (Version 3)
Quarter: 2015Q2

REPORT INFORMATION
  Report Type: Spontaneous
  Country: US (occurrence: US)
  Receive Date: 20150109
  Receipt Date: 20150403
  Transmission Date: 20150821
  Serious: Yes (Hospitalization, Other)
  Sender: FDA-Public Use
  Company Number: US-ELI_LILLY_AND_COMPANY-US201412008106

PATIENT
  Age: 64 Year
  Sex: Female
  Weight: 89.8 kg

DRUGS (1)
  1. HUMALOG [Suspect]
     Active Substance: INSULIN LISPRO
     Indication: PRODUCT USED FOR UNKNOWN INDICATION
     Route: 058

REACTIONS (10)
  - Dizziness [Unknown]
  - Blood glucose decreased [Unknown]
  - Scar [Unknown]
  - Thirst [Unknown]
  - Blood glucose increased [Unknown]
  - Pollakiuria [Unknown]
  - Diabetic ketoacidosis [Unknown]
  - Blood ketone body [Unknown]
  - Fatigue [Unknown]
  - Memory impairment [Unknown]

NARRATIVE: CASE EVENT DATE: 20141217
